FAERS Safety Report 6376188-2 (Version None)
Quarter: 2009Q3

REPORT INFORMATION
  Report Type: 
  Country: None (occurrence: None)
  Receive Date: 20090918
  Receipt Date: 20090908
  Transmission Date: 20100115
  Serious: Yes (Other)
  Sender: FDA-Public Use
  Company Number: 2009US003423

PATIENT
  Age: 13 Year
  Sex: Male

DRUGS (16)
  1. PROGRAF [Suspect]
     Indication: PANCREAS TRANSPLANT
     Dosage: SEE IMAGE
     Dates: start: 20060401, end: 20070101
  2. PROGRAF [Suspect]
     Indication: PANCREAS TRANSPLANT
     Dosage: SEE IMAGE
     Dates: start: 20070501, end: 20070101
  3. PROGRAF [Suspect]
     Indication: PANCREAS TRANSPLANT
     Dosage: SEE IMAGE
     Dates: start: 20060101
  4. PROGRAF [Suspect]
     Indication: PANCREAS TRANSPLANT
     Dosage: SEE IMAGE
     Dates: start: 20060201
  5. PROGRAF [Suspect]
     Indication: PANCREAS TRANSPLANT
     Dosage: SEE IMAGE
     Dates: start: 20060401
  6. PROGRAF [Suspect]
     Indication: PANCREAS TRANSPLANT
     Dosage: SEE IMAGE
     Dates: start: 20060701
  7. PROGRAF [Suspect]
     Indication: PANCREAS TRANSPLANT
     Dosage: SEE IMAGE
     Dates: start: 20070301
  8. PROGRAF [Suspect]
     Indication: PANCREAS TRANSPLANT
     Dosage: SEE IMAGE
     Dates: start: 20070501
  9. PROGRAF [Suspect]
     Indication: PANCREAS TRANSPLANT
     Dosage: SEE IMAGE
     Dates: start: 20070801
  10. PROGRAF [Suspect]
     Indication: PANCREAS TRANSPLANT
     Dosage: SEE IMAGE
     Dates: start: 20071101
  11. THYMOGLOBULIN [Suspect]
     Indication: PANCREAS TRANSPLANT
     Dates: start: 20060101
  12. GANCICLOVIR [Suspect]
     Indication: PANCREAS TRANSPLANT
     Dates: start: 20060101
  13. MYCOPHENOLATE MOFETIL [Suspect]
     Indication: PANCREAS TRANSPLANT
     Dosage: 1.5 UG, UID/QD; 1 G, UID; QD
     Dates: start: 20060201, end: 20070101
  14. MYCOPHENOLATE MOFETIL [Suspect]
     Indication: PANCREAS TRANSPLANT
     Dosage: 1.5 UG, UID/QD; 1 G, UID; QD
     Dates: start: 20070501, end: 20070101
  15. PREDNISONE TAB [Suspect]
     Indication: PANCREAS TRANSPLANT
     Dosage: 30 MG, UID/QD; 5 MG, UID/QD;
     Dates: start: 20060401, end: 20070101
  16. PREDNISONE TAB [Suspect]
     Indication: PANCREAS TRANSPLANT
     Dosage: 30 MG, UID/QD; 5 MG, UID/QD;
     Dates: start: 20060201

REACTIONS (3)
  - CYTOMEGALOVIRUS INFECTION [None]
  - PANCREAS TRANSPLANT REJECTION [None]
  - URINARY TRACT INFECTION [None]
